FAERS Safety Report 21382629 (Version 1)
Quarter: 2022Q3

REPORT INFORMATION
  Report Type: Spontaneous
  Country: US (occurrence: None)
  Receive Date: 20220927
  Receipt Date: 20220927
  Transmission Date: 20221026
  Serious: Yes (Other)
  Sender: FDA-Public Use
  Company Number: US-ROCHE-3186503

PATIENT
  Age: 42 Year
  Sex: Female
  Weight: 141.19 kg

DRUGS (1)
  1. OCREVUS [Suspect]
     Active Substance: OCRELIZUMAB
     Indication: Relapsing multiple sclerosis
     Dosage: YES
     Route: 065
     Dates: start: 202111

REACTIONS (2)
  - Herpes virus infection [Unknown]
  - Walking aid user [Unknown]

NARRATIVE: CASE EVENT DATE: 20211101
